FAERS Safety Report 12498072 (Version 2)
Quarter: 2016Q3

REPORT INFORMATION
  Report Type: Spontaneous
  Country: IE (occurrence: IE)
  Receive Date: 20160626
  Receipt Date: 20160720
  Transmission Date: 20161109
  Serious: Yes (Hospitalization, Other)
  Sender: FDA-Public Use
  Company Number: IE-BAXTER-2016BAX031188

PATIENT
  Age: 44 Year
  Sex: Female

DRUGS (2)
  1. SODIUM CHLORIDE 0.9% W/V INTRAVENOUS INFUSION BP [Suspect]
     Active Substance: SODIUM CHLORIDE
     Indication: MEDICATION DILUTION
     Dosage: 5 BATCHES(DOSES WERE GIVEN) GIVEN BETWEEN 24MAY2016 AND 06JUN2016
     Route: 042
     Dates: start: 20160524, end: 20160606
  2. PIPERACILLIN/TAZOBACTAM [Suspect]
     Active Substance: PIPERACILLIN SODIUM\TAZOBACTAM SODIUM
     Indication: PRODUCT USED FOR UNKNOWN INDICATION
     Dosage: 5 BATCHES WERE GIVEN BETWEEN 24MAY2016 AND 06JUN2016
     Route: 042
     Dates: start: 20160524, end: 20160606

REACTIONS (3)
  - Device related infection [Recovered/Resolved]
  - Enterococcal infection [Recovered/Resolved]
  - Staphylococcal bacteraemia [Unknown]

NARRATIVE: CASE EVENT DATE: 20160604
